FAERS Safety Report 7936045-4 (Version None)
Quarter: 2011Q4

REPORT INFORMATION
  Report Type: 
  Country: None (occurrence: None)
  Receive Date: 20111123
  Receipt Date: 20111115
  Transmission Date: 20120403
  Serious: Yes (Hospitalization, Other)
  Sender: FDA-Public Use
  Company Number: AU-JNJFOC-20110909887

PATIENT
  Sex: Female

DRUGS (6)
  1. DOXORUBICIN HYDROCHLORIDE [Suspect]
     Indication: OVARIAN CANCER
     Route: 042
  2. ENOXAPARIN SODIUM [Suspect]
     Indication: DEEP VEIN THROMBOSIS
     Route: 058
  3. CARBOPLATIN [Suspect]
     Indication: OVARIAN CANCER
     Route: 065
  4. SUNITINIB MALATE [Suspect]
     Indication: OVARIAN CANCER
     Route: 065
     Dates: start: 20110913, end: 20111025
  5. SUNITINIB MALATE [Suspect]
     Route: 065
     Dates: start: 20111104
  6. TAXOL [Suspect]
     Indication: OVARIAN CANCER
     Route: 065

REACTIONS (6)
  - DIARRHOEA [None]
  - VOMITING [None]
  - NAUSEA [None]
  - OVARIAN CANCER METASTATIC [None]
  - MOUTH ULCERATION [None]
  - ABDOMINAL PAIN [None]
